FAERS Safety Report 4342798-7 (Version None)
Quarter: 2004Q2

REPORT INFORMATION
  Report Type: 
  Country: None (occurrence: None)
  Receive Date: 20040421
  Receipt Date: 20040412
  Transmission Date: 20050107
  Serious: Yes (Hospitalization)
  Sender: FDA-Public Use
  Company Number: US-BRISTOL-MYERS SQUIBB COMPANY-12556890

PATIENT
  Age: 51 Year
  Sex: Female

DRUGS (10)
  1. CARBOPLATIN [Suspect]
     Indication: OVARIAN CANCER
     Dosage: 1ST DOSE- 17SEP02
     Route: 042
     Dates: start: 20021008, end: 20021008
  2. PACLITAXEL [Suspect]
     Indication: OVARIAN CANCER
     Dosage: 1ST DOSE - 17SEP02
     Route: 042
     Dates: start: 20021008, end: 20021008
  3. INTERFERON GAMMA [Suspect]
     Indication: OVARIAN CANCER
     Dosage: 1ST DOSE - 17SEP02
     Route: 058
     Dates: start: 20021010, end: 20021010
  4. PREVACID [Concomitant]
     Dates: start: 20020501
  5. CLONIDINE [Concomitant]
     Dates: start: 20020905
  6. PROZAC [Concomitant]
     Dates: start: 20020824
  7. TRAMADOL HCL [Concomitant]
     Dates: start: 20020824
  8. FERROUS GLUCONATE [Concomitant]
     Dates: start: 20020905
  9. COLACE [Concomitant]
     Dates: start: 20020905
  10. ZYRTEC [Concomitant]
     Dates: start: 20020301

REACTIONS (1)
  - DEHYDRATION [None]
